FAERS Safety Report 8079178-7 (Version None)
Quarter: 2012Q1

REPORT INFORMATION
  Report Type: 
  Country: None (occurrence: None)
  Receive Date: 20120128
  Receipt Date: 20110809
  Transmission Date: 20120608
  Serious: No
  Sender: FDA-Public Use
  Company Number: US-ABBOTT-11P-163-0845389-00

PATIENT
  Sex: Male
  Weight: 88.53 kg

DRUGS (8)
  1. HUMIRA [Suspect]
     Indication: CROHN'S DISEASE
  2. VICODIN [Concomitant]
     Indication: ARTHRALGIA
  3. MULTI-VITAMIN [Concomitant]
     Indication: VITAMIN SUPPLEMENTATION
  4. ENTECORT [Concomitant]
     Indication: CROHN'S DISEASE
  5. PREDNISONE TAB [Concomitant]
     Indication: RHEUMATOID ARTHRITIS
  6. FISH OIL [Concomitant]
     Indication: SUPPLEMENTATION THERAPY
  7. HUMIRA [Suspect]
     Indication: RHEUMATOID ARTHRITIS
     Dates: start: 20110107
  8. AMBIEN [Concomitant]
     Indication: SLEEP DISORDER THERAPY

REACTIONS (2)
  - LYMPHADENOPATHY [None]
  - INJECTION SITE PAIN [None]
